FAERS Safety Report 9356777 (Version 1)
Quarter: 2013Q2

REPORT INFORMATION
  Report Type: Spontaneous
  Country: FR (occurrence: FR)
  Receive Date: 20130619
  Receipt Date: 20130619
  Transmission Date: 20140414
  Serious: Yes (Other)
  Sender: FDA-Public Use
  Company Number: FR-UCBSA-088555

PATIENT
  Age: 58 Year
  Sex: Female

DRUGS (8)
  1. KEPPRA [Suspect]
     Indication: EPILEPSY
     Dosage: UNKNOWN DOSE
     Route: 048
     Dates: start: 20130522, end: 20130524
  2. CORDARONE [Suspect]
     Indication: ATRIAL FLUTTER
     Dosage: INITIAL LOADING DOSE AND THEN REGULAR DOSE
     Route: 048
     Dates: start: 20130522
  3. KARDEGIC [Concomitant]
     Dosage: UNKNOWN DOSE
  4. ALDACTONE [Concomitant]
     Dosage: UNKNOWN DOSE
  5. GARDENAL [Concomitant]
     Dosage: UNKNOWN DOSE
  6. ALPRAZOLAM [Concomitant]
     Dosage: UNKNOWN DOSE
  7. VISKALDIX [Concomitant]
     Dosage: UNKNOWN DOSE
  8. SYMBICORT [Concomitant]
     Dosage: UNKNOWN DOSE

REACTIONS (1)
  - Hepatocellular injury [Recovering/Resolving]
